FAERS Safety Report 6248202-6 (Version None)
Quarter: 2009Q2

REPORT INFORMATION
  Report Type: 
  Country: None (occurrence: None)
  Receive Date: 20090624
  Receipt Date: 20090624
  Transmission Date: 20091009
  Serious: No
  Sender: FDA-Public Use
  Company Number: None

PATIENT

DRUGS (4)
  1. LIPITOR [Suspect]
  2. CRESTOR [Suspect]
  3. VYTORIN [Suspect]
  4. CHOLESTYRAMINE [Suspect]

REACTIONS (8)
  - ANHEDONIA [None]
  - ARTHRALGIA [None]
  - DEPRESSION [None]
  - FAECES DISCOLOURED [None]
  - FATIGUE [None]
  - INSOMNIA [None]
  - MALAISE [None]
  - MYALGIA [None]
